FAERS Safety Report 9712149 (Version 2)
Quarter: 2013Q4

REPORT INFORMATION
  Report Type: Spontaneous
  Country: IT (occurrence: IT)
  Receive Date: 20131126
  Receipt Date: 20131126
  Transmission Date: 20140711
  Serious: Yes (Other)
  Sender: FDA-Public Use
  Company Number: IT-B.I. PHARMACEUTICALS,INC./RIDGEFIELD-2013-IT-00478IT

PATIENT
  Age: 90 Year
  Sex: Female

DRUGS (4)
  1. PRADAXA [Suspect]
     Indication: THROMBOSIS PROPHYLAXIS
     Dosage: 150 MG
     Route: 048
     Dates: start: 20130115, end: 20130514
  2. PERINDOPRIL [Concomitant]
     Route: 048
  3. AROMASIN [Concomitant]
     Route: 048
  4. SEQUACOR [Concomitant]
     Route: 048

REACTIONS (2)
  - Normochromic normocytic anaemia [Unknown]
  - Renal failure [Unknown]
